FAERS Safety Report 11200773 (Version 1)
Quarter: 2015Q2

REPORT INFORMATION
  Report Type: Report from Study
  Country: NL (occurrence: NL)
  Receive Date: 20150618
  Receipt Date: 20150618
  Transmission Date: 20150821
  Serious: Yes (Hospitalization)
  Sender: FDA-Public Use
  Company Number: NL-ABBVIE-12P-114-0918110-08

PATIENT
  Age: 44 Year
  Sex: Female

DRUGS (18)
  1. NEXIUM [Concomitant]
     Active Substance: ESOMEPRAZOLE MAGNESIUM
     Indication: PROPHYLAXIS
     Dates: start: 200909
  2. PREDNISONE. [Concomitant]
     Active Substance: PREDNISONE
     Indication: CROHN^S DISEASE
     Dosage: 40 MG AND TAPERING
     Dates: end: 200601
  3. CALCICHEW-D3 [Concomitant]
     Active Substance: CALCIUM\CHOLECALCIFEROL
     Indication: OSTEOPOROSIS
     Dosage: 500MG/400IE
     Dates: start: 20061102
  4. VITAMIN D [Concomitant]
     Active Substance: CHOLECALCIFEROL
     Indication: OSTEOPOROSIS
     Dosage: DRINK
     Dates: start: 201011
  5. HUMIRA [Suspect]
     Active Substance: ADALIMUMAB
     Dosage: WEEK 2 80MG
     Route: 058
  6. HUMIRA [Suspect]
     Active Substance: ADALIMUMAB
     Route: 058
     Dates: start: 20090128, end: 20090731
  7. PREDNISONE. [Concomitant]
     Active Substance: PREDNISONE
     Dates: start: 20090226
  8. LOPERAMIDE [Concomitant]
     Active Substance: LOPERAMIDE
     Indication: DIARRHOEA
     Dates: start: 20080804
  9. SODIUM BICARBONATE. [Concomitant]
     Active Substance: SODIUM BICARBONATE
     Indication: OSTEOPOROSIS
     Dates: start: 20110629
  10. HYDROCOBAMINE [Concomitant]
     Active Substance: HYDROXOCOBALAMIN HYDROCHLORIDE
     Indication: VITAMIN SUPPLEMENTATION
     Dosage: 500MCG/ML
     Dates: start: 20061102
  11. PARACETAMOL [Concomitant]
     Active Substance: ACETAMINOPHEN
     Indication: ABDOMINAL PAIN
     Dates: start: 20090310
  12. HUMIRA [Suspect]
     Active Substance: ADALIMUMAB
     Indication: CROHN^S DISEASE
     Dosage: INDUCTION: 160MG (BASELINE)
     Route: 058
     Dates: start: 20080930, end: 20080930
  13. HUMIRA [Suspect]
     Active Substance: ADALIMUMAB
     Route: 058
  14. HUMIRA [Suspect]
     Active Substance: ADALIMUMAB
     Route: 058
     Dates: start: 20081224, end: 20081224
  15. AZATHIOPRINE. [Concomitant]
     Active Substance: AZATHIOPRINE
     Indication: CROHN^S DISEASE
     Dates: start: 20090112
  16. PARENTERAL FEEDING [Concomitant]
     Indication: CROHN^S DISEASE
     Dosage: CONTINUOUS
     Dates: start: 201008
  17. HUMIRA [Suspect]
     Active Substance: ADALIMUMAB
     Route: 058
     Dates: start: 20081231
  18. QUESTRAN [Concomitant]
     Active Substance: CHOLESTYRAMINE
     Indication: DIARRHOEA
     Dates: start: 20081230

REACTIONS (2)
  - Abscess [Not Recovered/Not Resolved]
  - Crohn^s disease [Not Recovered/Not Resolved]

NARRATIVE: CASE EVENT DATE: 20110915
